FAERS Safety Report 10512647 (Version 1)
Quarter: 2014Q4

REPORT INFORMATION
  Report Type: Spontaneous
  Country: ES (occurrence: ES)
  Receive Date: 20141012
  Receipt Date: 20141012
  Transmission Date: 20150528
  Serious: Yes (Other)
  Sender: FDA-Public Use
  Company Number: PHHY2014ES131792

PATIENT
  Sex: Female

DRUGS (1)
  1. RASILEZ [Suspect]
     Active Substance: ALISKIREN
     Indication: HYPERTENSION
     Dosage: 150 MG, UNK
     Route: 065
     Dates: start: 20110715

REACTIONS (2)
  - Oesophagitis [Not Recovered/Not Resolved]
  - Tracheal disorder [Not Recovered/Not Resolved]

NARRATIVE: CASE EVENT DATE: 2011
